FAERS Safety Report 5585621-5 (Version None)
Quarter: 2008Q1

REPORT INFORMATION
  Report Type: 
  Country: None (occurrence: None)
  Receive Date: 20080109
  Receipt Date: 20080104
  Transmission Date: 20080703
  Serious: Yes (Other)
  Sender: FDA-Public Use
  Company Number: CH-MERCK-0801CHE00004

PATIENT
  Age: 85 Year
  Sex: Male
  Weight: 65 kg

DRUGS (2)
  1. PRIMAXIN [Suspect]
     Indication: SEPSIS
     Route: 042
     Dates: start: 20070820, end: 20070826
  2. CLARITHROMYCIN [Concomitant]
     Indication: SEPSIS
     Route: 042
     Dates: start: 20070820, end: 20070829

REACTIONS (3)
  - DISORIENTATION [None]
  - ENCEPHALOPATHY [None]
  - SOMNOLENCE [None]
